FAERS Safety Report 11838251 (Version 1)
Quarter: 2015Q4

REPORT INFORMATION
  Report Type: Spontaneous
  Country: US (occurrence: US)
  Receive Date: 20151215
  Receipt Date: 20151215
  Transmission Date: 20160305
  Serious: No
  Sender: FDA-Public Use
  Company Number: US-NOVOPROD-433193

PATIENT
  Sex: Male

DRUGS (1)
  1. NOVOLIN 70/30 [Suspect]
     Active Substance: INSULIN HUMAN
     Indication: PRODUCT USED FOR UNKNOWN INDICATION
     Route: 058

REACTIONS (7)
  - Sinus disorder [Unknown]
  - Palpitations [Unknown]
  - Blood pressure increased [Unknown]
  - Pruritus [Unknown]
  - Chest pain [Unknown]
  - Hyperventilation [Unknown]
  - Obstructive airways disorder [Unknown]
